FAERS Safety Report 9244988 (Version 4)
Quarter: 2013Q3

REPORT INFORMATION
  Report Type: Spontaneous
  Country: GB (occurrence: GB)
  Receive Date: 20130422
  Receipt Date: 20130802
  Transmission Date: 20140515
  Serious: Yes (Hospitalization, Other)
  Sender: FDA-Public Use
  Company Number: PHFR2013GB002264

PATIENT
  Age: 73 Year
  Sex: Female

DRUGS (5)
  1. CLOZARIL [Suspect]
     Indication: SCHIZOPHRENIA
     Dosage: UNK
     Dates: start: 20010701, end: 20130409
  2. CLOZARIL [Suspect]
     Dosage: UNK
     Dates: start: 20130417
  3. CLOZARIL [Suspect]
     Dosage: 475 MG, UNK
     Route: 048
  4. LITHIUM [Concomitant]
     Dosage: 600 MG, UNK
     Route: 048
  5. AMISULPRIDE [Concomitant]
     Dosage: 400 MG, UNK
     Route: 048

REACTIONS (3)
  - Urinary tract infection [Recovering/Resolving]
  - Disorientation [Recovering/Resolving]
  - Lower respiratory tract infection [Recovered/Resolved]
